FAERS Safety Report 8663570 (Version 18)
Quarter: 2017Q3

REPORT INFORMATION
  Report Type: Report from Study
  Country: CA (occurrence: CA)
  Receive Date: 20120713
  Receipt Date: 20170717
  Transmission Date: 20171128
  Serious: Yes (Other)
  Sender: FDA-Public Use
  Company Number: PHHY2012CA051576

PATIENT
  Age: 56 Year
  Sex: Male

DRUGS (4)
  1. GILENYA [Suspect]
     Active Substance: FINGOLIMOD HYDROCHLORIDE
     Indication: RELAPSING-REMITTING MULTIPLE SCLEROSIS
     Dosage: 0.5 MG, QD
     Route: 048
     Dates: start: 20120517
  2. RAMIPRIL. [Concomitant]
     Active Substance: RAMIPRIL
     Indication: PRODUCT USED FOR UNKNOWN INDICATION
     Dosage: 5 MG, QD
     Route: 048
  3. VITAMIN D [Concomitant]
     Active Substance: CHOLECALCIFEROL
     Indication: SUPPLEMENTATION THERAPY
     Dosage: LESS THAN 4000 IU DAILY, QD
     Route: 065
  4. AMANTADINE. [Concomitant]
     Active Substance: AMANTADINE HYDROCHLORIDE
     Indication: FATIGUE
     Dosage: 100 MG, BID
     Route: 065

REACTIONS (47)
  - Blood cholesterol increased [Not Recovered/Not Resolved]
  - Tinnitus [Unknown]
  - Cerebellar syndrome [Unknown]
  - Flank pain [Unknown]
  - Head discomfort [Recovering/Resolving]
  - Urine analysis abnormal [Unknown]
  - Eye pain [Recovered/Resolved]
  - Abdominal discomfort [Recovering/Resolving]
  - Abdominal pain lower [Recovering/Resolving]
  - Chest discomfort [Recovering/Resolving]
  - Disturbance in attention [Not Recovered/Not Resolved]
  - Ataxia [Unknown]
  - Temperature intolerance [Unknown]
  - Strabismus [Unknown]
  - Blood pressure increased [Recovering/Resolving]
  - Muscle spasticity [Unknown]
  - Back pain [Recovered/Resolved]
  - Balance disorder [Recovering/Resolving]
  - Musculoskeletal pain [Unknown]
  - Photosensitivity reaction [Recovering/Resolving]
  - Pain in extremity [Recovered/Resolved]
  - Platelet count decreased [Unknown]
  - Low density lipoprotein increased [Not Recovered/Not Resolved]
  - Memory impairment [Not Recovered/Not Resolved]
  - Intention tremor [Unknown]
  - Multiple sclerosis relapse [Unknown]
  - Gait disturbance [Recovering/Resolving]
  - Urinary hesitation [Not Recovered/Not Resolved]
  - Hepatic enzyme increased [Unknown]
  - Nausea [Recovering/Resolving]
  - Musculoskeletal stiffness [Recovering/Resolving]
  - Visual impairment [Unknown]
  - Chest pain [Unknown]
  - Dizziness [Recovering/Resolving]
  - Hypoaesthesia [Not Recovered/Not Resolved]
  - Vision blurred [Unknown]
  - Dyspepsia [Unknown]
  - Bladder disorder [Unknown]
  - Fatigue [Recovering/Resolving]
  - Sensory disturbance [Unknown]
  - Dysmetria [Unknown]
  - Gait spastic [Unknown]
  - Sensory loss [Unknown]
  - Vertigo [Recovering/Resolving]
  - Astigmatism [Unknown]
  - Headache [Recovering/Resolving]
  - Lymphocyte count decreased [Unknown]

NARRATIVE: CASE EVENT DATE: 201205
